FAERS Safety Report 23867224 (Version 2)
Quarter: 2024Q2

REPORT INFORMATION
  Report Type: Spontaneous
  Country: GR (occurrence: GR)
  Receive Date: 20240517
  Receipt Date: 20240530
  Transmission Date: 20240715
  Serious: No
  Sender: FDA-Public Use
  Company Number: GR-PFIZER INC-PV202400062630

PATIENT
  Age: 11 Year
  Sex: Male
  Weight: 30 kg

DRUGS (1)
  1. GENOTROPIN [Suspect]
     Active Substance: SOMATROPIN
     Indication: Growth hormone deficiency
     Dosage: 8 MG, WEEKLY
     Route: 058
     Dates: start: 202207

REACTIONS (2)
  - Device use error [Not Recovered/Not Resolved]
  - Device mechanical issue [Not Recovered/Not Resolved]

NARRATIVE: CASE EVENT DATE: 20240503
